FAERS Safety Report 4724996-3 (Version None)
Quarter: 2005Q3

REPORT INFORMATION
  Report Type: 
  Country: None (occurrence: None)
  Receive Date: 20050722
  Receipt Date: 20050722
  Transmission Date: 20060218
  Serious: Yes (Hospitalization)
  Sender: FDA-Public Use
  Company Number: None

PATIENT
  Age: 40 Year
  Sex: Female

DRUGS (1)
  1. PHENYTOIN [Suspect]

REACTIONS (3)
  - ANOREXIA [None]
  - DRUG LEVEL ABOVE THERAPEUTIC [None]
  - SOMNOLENCE [None]
